FAERS Safety Report 7997210-3 (Version None)
Quarter: 2011Q4

REPORT INFORMATION
  Report Type: 
  Country: None (occurrence: None)
  Receive Date: 20111221
  Receipt Date: 20111212
  Transmission Date: 20120403
  Serious: No
  Sender: FDA-Public Use
  Company Number: US-JNJFOC-20111205471

PATIENT
  Sex: Female
  Weight: 43.09 kg

DRUGS (5)
  1. SIMVASTATIN [Concomitant]
     Indication: BLOOD CHOLESTEROL
     Route: 048
     Dates: start: 20100101
  2. RISPERDAL CONSTA [Suspect]
     Indication: ABNORMAL BEHAVIOUR
     Route: 030
     Dates: end: 20101101
  3. RISPERDAL [Suspect]
     Indication: ABNORMAL BEHAVIOUR
     Route: 048
     Dates: start: 20100501, end: 20101101
  4. INVEGA SUSTENNA [Suspect]
     Indication: ABNORMAL BEHAVIOUR
     Route: 030
     Dates: start: 20101201, end: 20110301
  5. FOSAMAX [Concomitant]
     Indication: OSTEOPENIA

REACTIONS (5)
  - VIITH NERVE PARALYSIS [None]
  - MEMORY IMPAIRMENT [None]
  - ALOPECIA [None]
  - BLOOD CHOLESTEROL INCREASED [None]
  - SKIN WRINKLING [None]
